FAERS Safety Report 4500265-1 (Version None)
Quarter: 2004Q3

REPORT INFORMATION
  Report Type: 
  Country: None (occurrence: None)
  Receive Date: 20040927
  Receipt Date: 20040719
  Transmission Date: 20050211
  Serious: No
  Sender: FDA-Public Use
  Company Number: USA040772976

PATIENT
  Age: 38 Year
  Sex: Male
  Weight: 84 kg

DRUGS (1)
  1. STRATTERA [Suspect]
     Indication: ATTENTION DEFICIT/HYPERACTIVITY DISORDER
     Dosage: 120 MG/1 DAY
     Dates: start: 20040501

REACTIONS (6)
  - DECREASED APPETITE [None]
  - HALLUCINATION, AUDITORY [None]
  - LIBIDO INCREASED [None]
  - NEUROSIS [None]
  - PRESCRIBED OVERDOSE [None]
  - WEIGHT DECREASED [None]
